FAERS Safety Report 19911920 (Version 2)
Quarter: 2021Q4

REPORT INFORMATION
  Report Type: Report from Study
  Country: TR (occurrence: TR)
  Receive Date: 20211004
  Receipt Date: 20211005
  Transmission Date: 20220303
  Serious: Yes (Hospitalization)
  Sender: FDA-Public Use
  Company Number: TR-CELGENE-TUR-20210907435

PATIENT
  Age: 79 Year
  Sex: Male
  Weight: 70 kg

DRUGS (13)
  1. AZACITIDINE [Suspect]
     Active Substance: AZACITIDINE
     Indication: Acute myeloid leukaemia
     Route: 058
     Dates: start: 20191105, end: 20191111
  2. CUSATUZUMAB [Suspect]
     Active Substance: CUSATUZUMAB
     Indication: Acute myeloid leukaemia
     Route: 041
     Dates: start: 20191107, end: 20191121
  3. INDAPAMIDE\PERINDOPRIL ERBUMINE [Concomitant]
     Active Substance: INDAPAMIDE\PERINDOPRIL ERBUMINE
     Indication: Hypertension
     Route: 048
  4. PHENIRAMINE [Concomitant]
     Active Substance: PHENIRAMINE
     Indication: Premedication
     Route: 041
     Dates: start: 20191105, end: 20191111
  5. PHENIRAMINE [Concomitant]
     Active Substance: PHENIRAMINE
     Route: 041
     Dates: start: 20191121, end: 20191121
  6. RANITIDINE HYDROCHLORIDE [Concomitant]
     Active Substance: RANITIDINE HYDROCHLORIDE
     Indication: Premedication
     Route: 041
     Dates: start: 20191105, end: 20191111
  7. RANITIDINE HYDROCHLORIDE [Concomitant]
     Active Substance: RANITIDINE HYDROCHLORIDE
     Route: 041
     Dates: start: 20191121, end: 20191121
  8. KYTRIL [Concomitant]
     Active Substance: GRANISETRON HYDROCHLORIDE
     Indication: Premedication
     Route: 041
     Dates: start: 20191105, end: 20191111
  9. KYTRIL [Concomitant]
     Active Substance: GRANISETRON HYDROCHLORIDE
     Route: 041
     Dates: start: 20191121, end: 20191121
  10. DEXAMETHASONE [Concomitant]
     Active Substance: DEXAMETHASONE
     Indication: Premedication
     Route: 041
     Dates: start: 20191107, end: 20191107
  11. DEXAMETHASONE [Concomitant]
     Active Substance: DEXAMETHASONE
     Route: 041
     Dates: start: 20191121, end: 20191121
  12. DEXAMETHASONE [Concomitant]
     Active Substance: DEXAMETHASONE
     Route: 041
     Dates: start: 20191212, end: 20191212
  13. ACETAMINOPHEN [Concomitant]
     Active Substance: ACETAMINOPHEN
     Indication: Premedication
     Route: 048
     Dates: start: 20191107, end: 20191107

REACTIONS (1)
  - Colitis [Recovered/Resolved]

NARRATIVE: CASE EVENT DATE: 20191121
